FAERS Safety Report 7139024-2 (Version None)
Quarter: 2010Q4

REPORT INFORMATION
  Report Type: 
  Country: None (occurrence: None)
  Receive Date: 20101206
  Receipt Date: 20101129
  Transmission Date: 20110411
  Serious: Yes (Hospitalization)
  Sender: FDA-Public Use
  Company Number: A0897591A

PATIENT
  Age: 55 Year
  Sex: Male

DRUGS (1)
  1. MELPHALAN HYDROCHLORIDE [Suspect]
     Indication: MULTIPLE MYELOMA
     Dosage: 200MGM2 SINGLE DOSE
     Route: 042
     Dates: start: 20100504, end: 20100505

REACTIONS (1)
  - FEBRILE NEUTROPENIA [None]
